FAERS Safety Report 18969462 (Version 1)
Quarter: 2021Q1

REPORT INFORMATION
  Report Type: Spontaneous
  Country: CA (occurrence: CA)
  Receive Date: 20210304
  Receipt Date: 20210304
  Transmission Date: 20210420
  Serious: Yes (Other)
  Sender: FDA-Public Use
  Company Number: CA-INCYTE CORPORATION-2021IN001638

PATIENT

DRUGS (5)
  1. JAKAVI [Suspect]
     Active Substance: RUXOLITINIB
     Indication: HAEMOPHAGOCYTIC LYMPHOHISTIOCYTOSIS
     Dosage: 15 MG, BID
     Route: 065
  2. ETOPOSIDE. [Suspect]
     Active Substance: ETOPOSIDE
     Dosage: 75 MG/M2 (DOSE?REDUCED)
     Route: 065
  3. JAKAVI [Suspect]
     Active Substance: RUXOLITINIB
     Dosage: 10 MG, BID
     Route: 065
  4. JAKAVI [Suspect]
     Active Substance: RUXOLITINIB
     Dosage: 15 MG, BID
     Route: 065
  5. ETOPOSIDE. [Suspect]
     Active Substance: ETOPOSIDE
     Indication: HAEMOPHAGOCYTIC LYMPHOHISTIOCYTOSIS
     Dosage: 15 MG/M2 (DAYS MINUS26 AND MINUS 23) AND DAYS MINUS20 AND MINUS 3,
     Route: 065

REACTIONS (6)
  - Product use in unapproved indication [Unknown]
  - Enterococcal bacteraemia [Unknown]
  - Abscess limb [Unknown]
  - Pneumocystis jirovecii pneumonia [Unknown]
  - Haematoma infection [Unknown]
  - Cytomegalovirus infection reactivation [Unknown]
